FAERS Safety Report 5593020-5 (Version None)
Quarter: 2008Q1

REPORT INFORMATION
  Report Type: 
  Country: None (occurrence: None)
  Receive Date: 20080116
  Receipt Date: 20080105
  Transmission Date: 20080703
  Serious: Yes (Hospitalization)
  Sender: FDA-Public Use
  Company Number: US-JNJFOC-20080101215

PATIENT
  Age: 74 Year
  Sex: Female

DRUGS (2)
  1. TYLENOL (CAPLET) [Suspect]
     Route: 048
  2. TYLENOL (CAPLET) [Suspect]
     Indication: INFLAMMATION
     Route: 048

REACTIONS (2)
  - FOREIGN BODY TRAUMA [None]
  - HAEMORRHAGE [None]
